FAERS Safety Report 5507428-7 (Version None)
Quarter: 2007Q4

REPORT INFORMATION
  Report Type: 
  Country: None (occurrence: None)
  Receive Date: 20071106
  Receipt Date: 20071105
  Transmission Date: 20080405
  Serious: Yes (Hospitalization, Other)
  Sender: FDA-Public Use
  Company Number: KR-BRISTOL-MYERS SQUIBB COMPANY-13968763

PATIENT
  Age: 32 Year
  Sex: Male
  Weight: 57 kg

DRUGS (3)
  1. CARBOPLATIN [Suspect]
     Indication: NON-SMALL CELL LUNG CANCER
     Dosage: INITIAL DOSE ON 08-FEB-2007
     Route: 042
     Dates: start: 20070302, end: 20070302
  2. PEMETREXED DISODIUM [Suspect]
     Indication: NON-SMALL CELL LUNG CANCER
     Dosage: INITIAL DOSE WAS GIVEN ON 08-FEB-2007
     Route: 042
     Dates: start: 20070302, end: 20070302
  3. FOLIC ACID [Concomitant]
     Dates: start: 20070201, end: 20070323

REACTIONS (2)
  - MALIGNANT NEOPLASM PROGRESSION [None]
  - NEPHROTIC SYNDROME [None]
